FAERS Safety Report 9820944 (Version 1)
Quarter: 2014Q1

REPORT INFORMATION
  Report Type: Spontaneous
  Country: US (occurrence: US)
  Receive Date: 20140116
  Receipt Date: 20140116
  Transmission Date: 20141002
  Serious: No
  Sender: FDA-Public Use
  Company Number: US-MYLANLABS-2013S1022049

PATIENT
  Sex: Female

DRUGS (1)
  1. VALSARTAN/HYDROCHLOORTHIAZIDE [Suspect]

REACTIONS (2)
  - Oedema peripheral [Not Recovered/Not Resolved]
  - Unevaluable event [Not Recovered/Not Resolved]
